FAERS Safety Report 7367771-6 (Version None)
Quarter: 2011Q1

REPORT INFORMATION
  Report Type: 
  Country: None (occurrence: None)
  Receive Date: 20110322
  Receipt Date: 20110316
  Transmission Date: 20110831
  Serious: Yes (Death, Hospitalization, Other)
  Sender: FDA-Public Use
  Company Number: US-AMGEN-USASP2011011852

PATIENT
  Age: 81 Year
  Sex: Female
  Weight: 77.551 kg

DRUGS (16)
  1. NPLATE [Suspect]
     Dates: start: 20110223
  2. SYNTHROID [Concomitant]
  3. POTASSIUM CHLORIDE [Concomitant]
  4. CARDIZEM [Concomitant]
  5. PREDNISONE [Concomitant]
  6. ATENOLOL [Concomitant]
  7. ZANTAC                             /00550801/ [Concomitant]
  8. CORTICOSTEROIDS [Concomitant]
     Dosage: UNK
  9. SIMVASTATIN [Concomitant]
  10. TAMSULOSIN HCL [Concomitant]
  11. AMLODIPINE BESYLATE [Concomitant]
  12. LASIX [Concomitant]
  13. CYCLOBENZAPRINE [Concomitant]
  14. NPLATE [Suspect]
     Indication: IDIOPATHIC THROMBOCYTOPENIC PURPURA
     Dosage: 75 A?G, QWK
     Route: 058
     Dates: start: 20110223, end: 20110223
  15. METFORMIN [Concomitant]
  16. VANCOMYCIN [Concomitant]

REACTIONS (7)
  - PANCYTOPENIA [None]
  - STAPHYLOCOCCAL INFECTION [None]
  - SEPSIS [None]
  - INTESTINAL ISCHAEMIA [None]
  - RENAL FAILURE [None]
  - MARROW HYPERPLASIA [None]
  - POST PROCEDURAL COMPLICATION [None]
